FAERS Safety Report 9530280 (Version 3)
Quarter: 2013Q4

REPORT INFORMATION
  Report Type: Spontaneous
  Country: FR (occurrence: FR)
  Receive Date: 20130917
  Receipt Date: 20131003
  Transmission Date: 20140711
  Serious: Yes (Other)
  Sender: FDA-Public Use
  Company Number: FR-B.I. PHARMACEUTICALS,INC./RIDGEFIELD-2013-FF-02295FF

PATIENT
  Age: 84 Year
  Sex: Female

DRUGS (3)
  1. PRADAXA [Suspect]
     Indication: ATRIAL FIBRILLATION
     Dosage: 220 MG
     Route: 048
     Dates: start: 201209, end: 201307
  2. ATACAND [Concomitant]
     Dosage: 24 MG
  3. SOTALEX [Concomitant]
     Dosage: 80 MG

REACTIONS (1)
  - Ischaemic stroke [Recovered/Resolved]
